FAERS Safety Report 7627686-2 (Version None)
Quarter: 2011Q3

REPORT INFORMATION
  Report Type: 
  Country: None (occurrence: None)
  Receive Date: 20110721
  Receipt Date: 20110708
  Transmission Date: 20111222
  Serious: Yes (Hospitalization)
  Sender: FDA-Public Use
  Company Number: US-CELGENEUS-CA023-07-0108

PATIENT
  Sex: Female
  Weight: 80.9 kg

DRUGS (5)
  1. SINGULAIR [Concomitant]
     Indication: ASTHMA
     Route: 048
  2. ALBUTEROL SULFATE AUTOHALER [Concomitant]
     Indication: ASTHMA
     Route: 055
     Dates: start: 19940101
  3. ADVAIR DISKUS 100/50 [Concomitant]
     Indication: ASTHMA
     Route: 055
     Dates: start: 19980101
  4. ABRAXANE [Suspect]
     Dosage: 253MG  INITIAL DOSE/DATE OF LAST DOSE PRIOR TO SAE 24-JAN-2007 / 246MG
     Route: 051
     Dates: start: 20061206, end: 20070131
  5. BEVACIZUMAB [Suspect]
     Dosage: DATE OF LAST DOSE PRIOR TO SAE 24-JAN-2007 /875MG
     Route: 065
     Dates: start: 20061206

REACTIONS (1)
  - RESPIRATORY DISTRESS [None]
